FAERS Safety Report 5988298-X (Version None)
Quarter: 2008Q4

REPORT INFORMATION
  Report Type: 
  Country: None (occurrence: None)
  Receive Date: 20081204
  Receipt Date: 20081120
  Transmission Date: 20090506
  Serious: Yes (Hospitalization)
  Sender: FDA-Public Use
  Company Number: KV200800432

PATIENT
  Sex: Female

DRUGS (1)
  1. MORPHINE SULFATE [Suspect]
     Indication: PAIN
     Dosage: 15 MG BID ORAL
     Route: 048
     Dates: start: 20080101

REACTIONS (4)
  - DYSURIA [None]
  - HYPERTENSION [None]
  - PRODUCT QUALITY ISSUE [None]
  - TREMOR [None]
